FAERS Safety Report 23150175 (Version 1)
Quarter: 2023Q4

REPORT INFORMATION
  Report Type: Spontaneous
  Country: US (occurrence: US)
  Receive Date: 20231106
  Receipt Date: 20231106
  Transmission Date: 20240110
  Serious: Yes (Other)
  Sender: FDA-Public Use
  Company Number: US-BAYER-2023A153878

PATIENT
  Sex: Female

DRUGS (1)
  1. ALKA-SELTZER PLUS DAY AND NIGHT MULTI-SYMPTOM COLD AND FLU FORMULA [Suspect]
     Active Substance: ACETAMINOPHEN\DEXTROMETHORPHAN HYDROBROMIDE\DOXYLAMINE SUCCINATE\PHENYLEPHRINE
     Dosage: 1 DF
     Route: 048
     Dates: start: 20231025, end: 20231025

REACTIONS (3)
  - Foreign body in throat [None]
  - Dyspnoea [None]
  - Oropharyngeal pain [Not Recovered/Not Resolved]

NARRATIVE: CASE EVENT DATE: 20231025
